FAERS Safety Report 20994737 (Version 2)
Quarter: 2022Q3

REPORT INFORMATION
  Report Type: Spontaneous
  Country: US (occurrence: US)
  Receive Date: 20220622
  Receipt Date: 20220818
  Transmission Date: 20221027
  Serious: Yes (Death, Life-Threatening, Hospitalization, Other)
  Sender: FDA-Public Use
  Company Number: US-MLMSERVICE-20220614-3614779-1

PATIENT
  Age: 34 Year
  Sex: Female
  Weight: 48.8 kg

DRUGS (7)
  1. DIPHENHYDRAMINE [Suspect]
     Active Substance: DIPHENHYDRAMINE
     Indication: Drug use disorder
     Dosage: UNK
     Route: 042
  2. OXYCODONE HYDROCHLORIDE [Suspect]
     Active Substance: OXYCODONE HYDROCHLORIDE
     Indication: Drug use disorder
     Route: 042
  3. HYDROMORPHONE [Suspect]
     Active Substance: HYDROMORPHONE
     Indication: Drug use disorder
     Dosage: UNK
     Route: 048
  4. DOXYCYCLINE [Concomitant]
     Active Substance: DOXYCYCLINE
     Dosage: UNK
  5. FLUCONAZOLE [Concomitant]
     Active Substance: FLUCONAZOLE
     Dosage: UNK
  6. SODIUM CHLORIDE [Concomitant]
     Active Substance: SODIUM CHLORIDE
     Dosage: UNK
  7. POTASSIUM CHLORIDE [Concomitant]
     Active Substance: POTASSIUM CHLORIDE
     Dosage: UNK

REACTIONS (27)
  - Secondary amyloidosis [Fatal]
  - Electrolyte imbalance [Fatal]
  - Intentional product misuse [Fatal]
  - Myelosuppression [Fatal]
  - Pulseless electrical activity [Fatal]
  - Lactobacillus infection [Fatal]
  - Stomatococcal infection [Fatal]
  - Candida infection [Fatal]
  - Immune system disorder [Fatal]
  - Hypothyroidism [Fatal]
  - Staphylococcal infection [Fatal]
  - Bone marrow failure [Fatal]
  - Granuloma [Fatal]
  - Escherichia infection [Fatal]
  - Lung disorder [Fatal]
  - Sepsis [Fatal]
  - Myocarditis [Fatal]
  - Pseudomonas infection [Fatal]
  - Cardiac failure [Fatal]
  - Bacillus infection [Fatal]
  - Candida infection [Fatal]
  - Acute kidney injury [Fatal]
  - Dyspnoea [Fatal]
  - Generalised oedema [Fatal]
  - Wrong technique in product usage process [Fatal]
  - Incorrect route of product administration [Fatal]
  - Drug abuse [Fatal]
